FAERS Safety Report 4395722-5 (Version None)
Quarter: 2004Q3

REPORT INFORMATION
  Report Type: 
  Country: None (occurrence: None)
  Receive Date: 20040707
  Receipt Date: 20040621
  Transmission Date: 20050211
  Serious: Yes (Hospitalization)
  Sender: FDA-Public Use
  Company Number: DE-JNJFOC-20040501099

PATIENT
  Age: 67 Year
  Sex: Female

DRUGS (29)
  1. INFLIXIMAB, RECOMBINANT - BLINDED (INFLIXIMAB, RECOMBINANT) LYOPHILIZE [Suspect]
     Indication: CACHEXIA
     Dosage: SEE IMAGE
     Route: 042
     Dates: start: 20031015
  2. INFLIXIMAB, RECOMBINANT - BLINDED (INFLIXIMAB, RECOMBINANT) LYOPHILIZE [Suspect]
     Indication: CACHEXIA
     Dosage: SEE IMAGE
     Route: 042
     Dates: start: 20031029
  3. INFLIXIMAB, RECOMBINANT - BLINDED (INFLIXIMAB, RECOMBINANT) LYOPHILIZE [Suspect]
     Indication: CACHEXIA
     Dosage: SEE IMAGE
     Route: 042
     Dates: start: 20031112
  4. INFLIXIMAB, RECOMBINANT - BLINDED (INFLIXIMAB, RECOMBINANT) LYOPHILIZE [Suspect]
     Indication: CACHEXIA
     Dosage: SEE IMAGE
     Route: 042
     Dates: start: 20031210
  5. INFLIXIMAB, RECOMBINANT - BLINDED (INFLIXIMAB, RECOMBINANT) LYOPHILIZE [Suspect]
     Indication: CACHEXIA
     Dosage: SEE IMAGE
     Route: 042
     Dates: start: 20040107
  6. INFLIXIMAB, RECOMBINANT - BLINDED (INFLIXIMAB, RECOMBINANT) LYOPHILIZE [Suspect]
     Indication: CACHEXIA
     Dosage: SEE IMAGE
     Route: 042
     Dates: start: 20040204
  7. INFLIXIMAB, RECOMBINANT - BLINDED (INFLIXIMAB, RECOMBINANT) LYOPHILIZE [Suspect]
     Indication: CACHEXIA
     Dosage: SEE IMAGE
     Route: 042
     Dates: start: 20040303
  8. INFLIXIMAB, RECOMBINANT - BLINDED (INFLIXIMAB, RECOMBINANT) LYOPHILIZE [Suspect]
     Indication: CACHEXIA
     Dosage: SEE IMAGE
     Route: 042
     Dates: start: 20040331
  9. INFLIXIMAB, RECOMBINANT - BLINDED (INFLIXIMAB, RECOMBINANT) LYOPHILIZE [Suspect]
     Indication: CACHEXIA
     Dosage: SEE IMAGE
     Route: 042
     Dates: start: 20040428
  10. INFLIXIMAB, RECOMBINANT - BLINDED (INFLIXIMAB, RECOMBINANT) LYOPHILIZE [Suspect]
     Indication: CACHEXIA
     Dosage: SEE IMAGE
     Route: 042
     Dates: start: 20040526
  11. PLACEBO (PLACEBO) LYOPHILIZED POWDER [Suspect]
     Indication: CACHEXIA
     Dosage: SEE IMAGE
     Route: 042
     Dates: start: 20031015
  12. PLACEBO (PLACEBO) LYOPHILIZED POWDER [Suspect]
     Indication: CACHEXIA
     Dosage: SEE IMAGE
     Route: 042
     Dates: start: 20031029
  13. PLACEBO (PLACEBO) LYOPHILIZED POWDER [Suspect]
     Indication: CACHEXIA
     Dosage: SEE IMAGE
     Route: 042
     Dates: start: 20031112
  14. PLACEBO (PLACEBO) LYOPHILIZED POWDER [Suspect]
     Indication: CACHEXIA
     Dosage: SEE IMAGE
     Route: 042
     Dates: start: 20031210
  15. PLACEBO (PLACEBO) LYOPHILIZED POWDER [Suspect]
     Indication: CACHEXIA
     Dosage: SEE IMAGE
     Route: 042
     Dates: start: 20040107
  16. PLACEBO (PLACEBO) LYOPHILIZED POWDER [Suspect]
     Indication: CACHEXIA
     Dosage: SEE IMAGE
     Route: 042
     Dates: start: 20040204
  17. PLACEBO (PLACEBO) LYOPHILIZED POWDER [Suspect]
     Indication: CACHEXIA
     Dosage: SEE IMAGE
     Route: 042
     Dates: start: 20040204
  18. PLACEBO (PLACEBO) LYOPHILIZED POWDER [Suspect]
     Indication: CACHEXIA
     Dosage: SEE IMAGE
     Route: 042
     Dates: start: 20040303
  19. PLACEBO (PLACEBO) LYOPHILIZED POWDER [Suspect]
     Indication: CACHEXIA
     Dosage: SEE IMAGE
     Route: 042
     Dates: start: 20040331
  20. PLACEBO (PLACEBO) LYOPHILIZED POWDER [Suspect]
     Indication: CACHEXIA
     Dosage: SEE IMAGE
     Route: 042
     Dates: start: 20040428
  21. PLACEBO (PLACEBO) LYOPHILIZED POWDER [Suspect]
     Indication: CACHEXIA
     Dosage: SEE IMAGE
     Route: 042
     Dates: start: 20040526
  22. GEMCITABINE (GEMCITABINE) [Concomitant]
     Indication: PANCREATIC CARCINOMA
     Dosage: SEE IMAGE
     Route: 042
     Dates: start: 20031001
  23. GEMCITABINE (GEMCITABINE) [Concomitant]
     Indication: PANCREATIC CARCINOMA
     Dosage: SEE IMAGE
     Route: 042
     Dates: start: 20040609
  24. JODTHYROX (JODTHYROX) [Concomitant]
  25. NORVASC [Concomitant]
  26. KREON (PANCREATIN) [Concomitant]
  27. PRESOMEN (ESTROGENS CONJUGATED) [Concomitant]
  28. METFORMIN HCL [Concomitant]
  29. DRONABINOL (DRONABINOL) [Concomitant]

REACTIONS (2)
  - BILE DUCT OBSTRUCTION [None]
  - MIGRATION OF IMPLANT [None]
